FAERS Safety Report 11310149 (Version 1)
Quarter: 2015Q3

REPORT INFORMATION
  Report Type: Spontaneous
  Country: US (occurrence: US)
  Receive Date: 20150724
  Receipt Date: 20150724
  Transmission Date: 20151125
  Serious: Yes (Other)
  Sender: FDA-Public Use
  Company Number: US-ELI_LILLY_AND_COMPANY-US201507007102

PATIENT
  Age: 74 Year
  Sex: Female

DRUGS (3)
  1. HUMULIN 70/30 [Suspect]
     Active Substance: INSULIN HUMAN
     Indication: TYPE 2 DIABETES MELLITUS
     Dosage: 22 U, EACH MORNING
     Route: 065
     Dates: start: 201302
  2. LATANOPROST. [Concomitant]
     Active Substance: LATANOPROST
     Dosage: 1 GTT, QD
     Route: 047
  3. LANTUS [Concomitant]
     Active Substance: INSULIN GLARGINE
     Dosage: 34 U, QD

REACTIONS (6)
  - Incorrect dose administered [Unknown]
  - Nervousness [Unknown]
  - Visual acuity reduced [Unknown]
  - Dyspnoea [Unknown]
  - Tremor [Unknown]
  - Cerebrovascular accident [Unknown]

NARRATIVE: CASE EVENT DATE: 201303
